FAERS Safety Report 9182966 (Version 1)
Quarter: 2013Q1

REPORT INFORMATION
  Report Type: Spontaneous
  Country: US (occurrence: US)
  Receive Date: 20130322
  Receipt Date: 20130322
  Transmission Date: 20140127
  Serious: Yes (Other)
  Sender: FDA-Public Use
  Company Number: US-BRISTOL-MYERS SQUIBB COMPANY-16946105

PATIENT
  Age: 71 Year
  Sex: Male
  Weight: 61.68 kg

DRUGS (3)
  1. ERBITUX [Suspect]
  2. ATENOLOL [Concomitant]
  3. OXYCODONE [Concomitant]

REACTIONS (5)
  - Dehydration [Unknown]
  - Rash [Recovering/Resolving]
  - Skin fissures [Recovering/Resolving]
  - Nausea [Unknown]
  - Alopecia [Unknown]
